FAERS Safety Report 6612772-6 (Version None)
Quarter: 2010Q1

REPORT INFORMATION
  Report Type: 
  Country: None (occurrence: None)
  Receive Date: 20100223
  Receipt Date: 20040430
  Transmission Date: 20100710
  Serious: Yes (Hospitalization)
  Sender: FDA-Public Use
  Company Number: 2009-3034

PATIENT
  Age: 67 Year
  Sex: Male

DRUGS (9)
  1. APO-GO INJECTION      (APO-GO) (APOMORPHINE HYDROCHLORIDE) [Suspect]
     Indication: PARKINSON'S DISEASE
     Dosage: 60MG OVER 12 HOURS (5 MG, 1 IN 1 HR), SUBCUTANEOUS
     Route: 058
     Dates: start: 20040225
  2. ATENOLOL [Concomitant]
  3. SINEMET CR              (CINEMET) (CARBIDOPA, LEVODOPA) [Concomitant]
  4. CABERGOLINE [Concomitant]
  5. SINEMET                (SINEMET) (CARBIDOPA, LEVODOPA) [Concomitant]
  6. NITROGLYCERIN SPRAY (GLYCERYL TRINITRATE) [Concomitant]
  7. NIFEDIPINE [Concomitant]
  8. SELEGILINE (SELEGILINE) (SELEGILINE) [Concomitant]
  9. SINEMET [Concomitant]

REACTIONS (5)
  - ATRIAL FIBRILLATION [None]
  - FALL [None]
  - LEFT VENTRICULAR FAILURE [None]
  - SYNCOPE [None]
  - TRANSIENT ISCHAEMIC ATTACK [None]
